FAERS Safety Report 4871760-0 (Version None)
Quarter: 2006Q1

REPORT INFORMATION
  Report Type: 
  Country: None (occurrence: None)
  Receive Date: 20060104
  Receipt Date: 20050830
  Transmission Date: 20060701
  Serious: No
  Sender: FDA-Public Use
  Company Number: US-BRISTOL-MYERS SQUIBB COMPANY-13094875

PATIENT
  Age: 45 Year
  Sex: Male
  Weight: 107 kg

DRUGS (4)
  1. DESYREL [Suspect]
     Indication: INSOMNIA
     Dates: start: 20050601
  2. CARDIZEM [Concomitant]
  3. CARDIAC MEDICATIONS [Concomitant]
  4. NAPROSYN [Concomitant]

REACTIONS (1)
  - DRUG SCREEN FALSE POSITIVE [None]
